FAERS Safety Report 5125080-X (Version None)
Quarter: 2006Q4

REPORT INFORMATION
  Report Type: 
  Country: None (occurrence: None)
  Receive Date: 20061010
  Receipt Date: 20061010
  Transmission Date: 20070319
  Serious: Yes (Hospitalization, Other)
  Sender: FDA-Public Use
  Company Number: None

PATIENT
  Age: 14 Year
  Sex: Female
  Weight: 49.8957 kg

DRUGS (1)
  1. MINOCYCLINE 100 MG [Suspect]
     Indication: ACNE
     Dosage: 1 PILL 2XADAY PO
     Route: 048
     Dates: start: 20051221, end: 20060104

REACTIONS (9)
  - BACK PAIN [None]
  - HEADACHE [None]
  - HYPOAESTHESIA [None]
  - INFLUENZA [None]
  - INTRACRANIAL PRESSURE INCREASED [None]
  - NECK PAIN [None]
  - VIRAL INFECTION [None]
  - VISUAL DISTURBANCE [None]
  - VOMITING [None]
